FAERS Safety Report 10349579 (Version 1)
Quarter: 2014Q3

REPORT INFORMATION
  Report Type: Spontaneous
  Country: US (occurrence: None)
  Receive Date: 20140728
  Receipt Date: 20140728
  Transmission Date: 20150326
  Serious: No
  Sender: FDA-Public Use
  Company Number: None

PATIENT
  Age: 67 Year
  Sex: Female
  Weight: 52.16 kg

DRUGS (1)
  1. LEVOTHYROXINE [Suspect]
     Active Substance: LEVOTHYROXINE
     Indication: HYPOTHYROIDISM
     Route: 048
     Dates: start: 20140721, end: 20140727

REACTIONS (5)
  - Product quality issue [None]
  - Constipation [None]
  - Fatigue [None]
  - Lethargy [None]
  - Blood glucose abnormal [None]

NARRATIVE: CASE EVENT DATE: 20140721
